FAERS Safety Report 4931993-1 (Version None)
Quarter: 2006Q1

REPORT INFORMATION
  Report Type: 
  Country: None (occurrence: None)
  Receive Date: 20060303
  Receipt Date: 20051220
  Transmission Date: 20060701
  Serious: Yes (Hospitalization)
  Sender: FDA-Public Use
  Company Number: TR-GLAXOSMITHKLINE-B0404302A

PATIENT
  Age: 62 Year
  Sex: Female

DRUGS (3)
  1. LITHIUM [Suspect]
     Indication: BIPOLAR DISORDER
     Dosage: 900MG PER DAY
     Route: 065
  2. OLANZAPINE [Suspect]
     Indication: HALLUCINATION
     Dosage: 5MG PER DAY
     Route: 065
  3. CHLORPROMAZINE [Suspect]
     Indication: INSOMNIA
     Dosage: 200MG PER DAY
     Route: 065

REACTIONS (20)
  - ACUTE PRERENAL FAILURE [None]
  - BRADYCARDIA [None]
  - BRADYKINESIA [None]
  - CONFUSIONAL STATE [None]
  - DELIRIUM [None]
  - DIFFICULTY IN WALKING [None]
  - DISORIENTATION [None]
  - DRUG INTERACTION [None]
  - DYSKINESIA [None]
  - EXTRAPYRAMIDAL DISORDER [None]
  - GAZE PALSY [None]
  - HYPERPYREXIA [None]
  - HYPERTONIA [None]
  - LETHARGY [None]
  - MENTAL STATUS CHANGES [None]
  - MUSCLE RIGIDITY [None]
  - PSYCHOMOTOR RETARDATION [None]
  - THERAPEUTIC AGENT TOXICITY [None]
  - TREMOR [None]
  - WHITE BLOOD CELL COUNT INCREASED [None]
